FAERS Safety Report 14721281 (Version 1)
Quarter: 2018Q2

REPORT INFORMATION
  Report Type: Spontaneous
  Country: IT (occurrence: IT)
  Receive Date: 20180405
  Receipt Date: 20180405
  Transmission Date: 20180711
  Serious: Yes (Hospitalization)
  Sender: FDA-Public Use
  Company Number: IT-TEVA-2018-IT-876150

PATIENT
  Age: 91 Year
  Sex: Male

DRUGS (6)
  1. OLANZAPINE. [Suspect]
     Active Substance: OLANZAPINE
     Indication: SCHIZOPHRENIA
     Route: 048
     Dates: start: 20170901, end: 20171004
  2. LASIX [Concomitant]
     Active Substance: FUROSEMIDE
  3. CARDIOASPIRIN [Concomitant]
     Active Substance: ASPIRIN
  4. TRITTICO 25 MG/ML GOCCE ORALI, SOLUZIONE [Suspect]
     Active Substance: TRAZODONE HYDROCHLORIDE
     Indication: DEPRESSION
     Route: 048
     Dates: start: 20170901, end: 20171004
  5. FLUXUM [Concomitant]
     Active Substance: PARNAPARIN SODIUM
  6. LEXOTAN 2,5 MG/ML GOCCE ORALI SOLUZIONE [Concomitant]
     Active Substance: BROMAZEPAM

REACTIONS (4)
  - Hyponatraemia [Unknown]
  - Cognitive disorder [Unknown]
  - Vascular encephalopathy [Unknown]
  - Dyspnoea [Unknown]

NARRATIVE: CASE EVENT DATE: 20171004
